FAERS Safety Report 4322666-7 (Version None)
Quarter: 2004Q1

REPORT INFORMATION
  Report Type: 
  Country: None (occurrence: None)
  Receive Date: 20040324
  Receipt Date: 20040204
  Transmission Date: 20041129
  Serious: No
  Sender: FDA-Public Use
  Company Number: US-BRISTOL-MYERS SQUIBB COMPANY-12496733

PATIENT
  Age: 37 Year
  Sex: Female

DRUGS (6)
  1. REYATAZ [Suspect]
     Indication: HIV INFECTION
     Route: 048
     Dates: start: 20030829
  2. NORVIR [Concomitant]
  3. VIREAD [Concomitant]
  4. VIDEX EC [Concomitant]
  5. CONTRACEPTIVE [Concomitant]
  6. FOSAMAX [Concomitant]

REACTIONS (1)
  - BLOOD BILIRUBIN INCREASED [None]
